FAERS Safety Report 10712821 (Version 1)
Quarter: 2015Q1

REPORT INFORMATION
  Report Type: Other
  Country: DE (occurrence: DE)
  Receive Date: 20150115
  Receipt Date: 20150115
  Transmission Date: 20150721
  Serious: Yes (Other)
  Sender: FDA-Public Use
  Company Number: DE-LUPIN PHARMACEUTICALS INC.-E2B_00002932

PATIENT
  Age: 88 Year
  Sex: Male
  Weight: 54 kg

DRUGS (5)
  1. CICLOSPORIN A [Interacting]
     Active Substance: CYCLOSPORINE
     Route: 048
     Dates: end: 20141126
  2. AMIODARON [Suspect]
     Active Substance: AMIODARONE
     Indication: ATRIAL FIBRILLATION
     Route: 048
     Dates: start: 20141108
  3. CICLOSPORIN A [Interacting]
     Active Substance: CYCLOSPORINE
     Indication: GLOMERULONEPHRITIS MEMBRANOPROLIFERATIVE
     Route: 048
  4. AMIODARON [Suspect]
     Active Substance: AMIODARONE
     Route: 048
     Dates: end: 20141125
  5. SIMVASTATIN. [Interacting]
     Active Substance: SIMVASTATIN
     Indication: HYPERLIPIDAEMIA
     Route: 048
     Dates: end: 20141126

REACTIONS (2)
  - Rhabdomyolysis [Not Recovered/Not Resolved]
  - Drug interaction [Unknown]

NARRATIVE: CASE EVENT DATE: 20141121
